FAERS Safety Report 6727520-9 (Version None)
Quarter: 2010Q2

REPORT INFORMATION
  Report Type: 
  Country: None (occurrence: None)
  Receive Date: 20100517
  Receipt Date: 20100507
  Transmission Date: 20101027
  Serious: Yes (Hospitalization, Other)
  Sender: FDA-Public Use
  Company Number: GB-NAPPMUNDI-GBR-2010-0006530

PATIENT
  Sex: Male

DRUGS (2)
  1. MST CONTINUS TABLETS 30 MG [Suspect]
     Indication: CANCER PAIN
     Dosage: 30 MG, BID
     Route: 048
     Dates: start: 20091216
  2. GSAO [Suspect]
     Indication: ENDOMETRIAL CANCER
     Dosage: UNK
     Route: 042
     Dates: start: 20091116

REACTIONS (9)
  - CONFUSIONAL STATE [None]
  - CONVULSION [None]
  - DIARRHOEA [None]
  - HALLUCINATION, VISUAL [None]
  - INAPPROPRIATE ANTIDIURETIC HORMONE SECRETION [None]
  - LOWER RESPIRATORY TRACT INFECTION [None]
  - PARANOIA [None]
  - PERSONALITY CHANGE [None]
  - URINARY TRACT INFECTION [None]
